FAERS Safety Report 13068267 (Version 1)
Quarter: 2016Q4

REPORT INFORMATION
  Report Type: Spontaneous
  Country: US (occurrence: None)
  Receive Date: 20161220
  Receipt Date: 20161220
  Transmission Date: 20170207
  Serious: Yes (Hospitalization)
  Sender: FDA-Public Use
  Company Number: CPI 7373

PATIENT
  Age: 66 Year
  Sex: Female

DRUGS (10)
  1. HYDROCHLOROTHIAZIDE. [Concomitant]
     Active Substance: HYDROCHLOROTHIAZIDE
  2. AMOXICILLIN. [Concomitant]
     Active Substance: AMOXICILLIN
  3. CITALOPRAM [Concomitant]
     Active Substance: CITALOPRAM HYDROBROMIDE
  4. LEVODOPA [Concomitant]
     Active Substance: LEVODOPA
  5. CARBIDOPA. [Concomitant]
     Active Substance: CARBIDOPA
  6. ENTACAPONE. [Concomitant]
     Active Substance: ENTACAPONE
  7. OMEPRAZOLE. [Concomitant]
     Active Substance: OMEPRAZOLE
  8. CLARITHROMYCIN 500 MG/DAY [Suspect]
     Active Substance: CLARITHROMYCIN
     Indication: HELICOBACTER INFECTION
     Route: 048
  9. RASAGILINE [Concomitant]
     Active Substance: RASAGILINE
  10. ENALAPRIL [Concomitant]
     Active Substance: ENALAPRIL

REACTIONS (1)
  - Mania [None]

NARRATIVE: CASE EVENT DATE: 2014
